FAERS Safety Report 8797968 (Version 2)
Quarter: 2015Q1

REPORT INFORMATION
  Report Type: Report from Study
  Country: US (occurrence: US)
  Receive Date: 20120919
  Receipt Date: 20150312
  Transmission Date: 20150721
  Serious: Yes (Death)
  Sender: FDA-Public Use
  Company Number: US-ROCHE-1122911

PATIENT
  Sex: Male

DRUGS (14)
  1. ALOXI [Concomitant]
     Active Substance: PALONOSETRON HYDROCHLORIDE
     Route: 042
  2. TYLENOL [Concomitant]
     Active Substance: ACETAMINOPHEN
     Route: 048
  3. ATIVAN [Concomitant]
     Active Substance: LORAZEPAM
     Indication: ANXIETY
  4. ACTIVASE [Concomitant]
     Active Substance: ALTEPLASE
     Route: 065
  5. AVASTIN [Suspect]
     Active Substance: BEVACIZUMAB
     Indication: PROSTATE CANCER
     Route: 042
     Dates: start: 20080204
  6. AVASTIN [Suspect]
     Active Substance: BEVACIZUMAB
     Route: 042
  7. DECADRON [Concomitant]
     Active Substance: DEXAMETHASONE
     Route: 042
  8. TAXOTERE [Concomitant]
     Active Substance: DOCETAXEL
     Route: 042
  9. TRELSTAR [Concomitant]
     Active Substance: TRIPTORELIN PAMOATE
     Route: 042
  10. ATIVAN [Concomitant]
     Active Substance: LORAZEPAM
     Indication: EMOTIONAL DISTRESS
     Route: 042
  11. ZOMETA [Concomitant]
     Active Substance: ZOLEDRONIC ACID
     Route: 042
  12. LUPRON [Concomitant]
     Active Substance: LEUPROLIDE ACETATE
     Route: 065
  13. TAXOTERE [Concomitant]
     Active Substance: DOCETAXEL
     Route: 042
  14. TRELSTAR [Concomitant]
     Active Substance: TRIPTORELIN PAMOATE
     Route: 042

REACTIONS (11)
  - Death [Fatal]
  - Vomiting [Unknown]
  - Emotional distress [Unknown]
  - Dehydration [Unknown]
  - Dry skin [Unknown]
  - Off label use [Unknown]
  - Anxiety [Unknown]
  - Tenderness [Unknown]
  - Neuropathy peripheral [Unknown]
  - Abdominal pain [Unknown]
  - Nausea [Unknown]
